FAERS Safety Report 18513190 (Version 3)
Quarter: 2023Q2

REPORT INFORMATION
  Report Type: Report from Study
  Country: IT (occurrence: IT)
  Receive Date: 20201117
  Receipt Date: 20230629
  Transmission Date: 20230721
  Serious: Yes (Hospitalization)
  Sender: FDA-Public Use
  Company Number: IT-002147023-NVSC2020IT301317

PATIENT

DRUGS (4)
  1. RUXOLITINIB [Suspect]
     Active Substance: RUXOLITINIB
     Indication: Myelofibrosis
     Dosage: 10 MG, DAILY
     Route: 048
     Dates: start: 20200728, end: 20200827
  2. LEVOTHYROXINE SODIUM [Concomitant]
     Active Substance: LEVOTHYROXINE SODIUM
     Indication: Thyroid mass
     Dosage: 50 UG, QD
     Route: 065
     Dates: start: 2011
  3. BISOPROLOL [Concomitant]
     Active Substance: BISOPROLOL
     Indication: Hypertension
     Dosage: 2.5 MG, QD
     Route: 065
     Dates: start: 201603
  4. LANOXIN [Concomitant]
     Active Substance: DIGOXIN
     Indication: Atrial fibrillation
     Dosage: 0.063 MG, QD
     Route: 065
     Dates: start: 201603

REACTIONS (2)
  - Lung disorder [Recovered/Resolved]
  - Splenomegaly [Unknown]

NARRATIVE: CASE EVENT DATE: 20200906
